FAERS Safety Report 4700777-1 (Version None)
Quarter: 2005Q2

REPORT INFORMATION
  Report Type: 
  Country: None (occurrence: None)
  Receive Date: 20050624
  Receipt Date: 20040809
  Transmission Date: 20051028
  Serious: Yes (Hospitalization)
  Sender: FDA-Public Use
  Company Number: 377294

PATIENT
  Sex: Female

DRUGS (6)
  1. XELODA [Suspect]
     Indication: BREAST CANCER
     Dosage: 2000 MG 2 PER DAY ORAL
     Route: 048
     Dates: start: 20031215
  2. ARIMIDEX [Concomitant]
  3. ZOLOFT [Concomitant]
  4. VALIUM [Concomitant]
  5. AMBIEN [Concomitant]
  6. VITAMIN B6 [Concomitant]

REACTIONS (25)
  - ABDOMINAL PAIN [None]
  - ANAEMIA [None]
  - ANOREXIA [None]
  - BLOOD ALKALINE PHOSPHATASE INCREASED [None]
  - BLOOD PRESSURE DECREASED [None]
  - CONJUNCTIVAL DISORDER [None]
  - CONJUNCTIVAL IRRITATION [None]
  - CONJUNCTIVITIS [None]
  - DIARRHOEA [None]
  - DIZZINESS POSTURAL [None]
  - ENTERITIS [None]
  - EPISTAXIS [None]
  - FATIGUE [None]
  - FEBRILE NEUTROPENIA [None]
  - HEADACHE [None]
  - ILEUS [None]
  - NAUSEA [None]
  - OEDEMA PERIPHERAL [None]
  - PALMAR-PLANTAR ERYTHRODYSAESTHESIA SYNDROME [None]
  - RHINORRHOEA [None]
  - SKIN EXFOLIATION [None]
  - STOMATITIS [None]
  - TELANGIECTASIA [None]
  - VOMITING [None]
  - WEIGHT DECREASED [None]
